FAERS Safety Report 7794653-8 (Version None)
Quarter: 2011Q4

REPORT INFORMATION
  Report Type: 
  Country: None (occurrence: None)
  Receive Date: 20111003
  Receipt Date: 20111003
  Transmission Date: 20120403
  Serious: Yes (Hospitalization)
  Sender: FDA-Public Use
  Company Number: None

PATIENT
  Sex: Female
  Weight: 53.9 kg

DRUGS (2)
  1. DACARBAZINE [Suspect]
     Dosage: 1140 MGG
  2. BLEOMYCIN SULFATE [Suspect]
     Dosage: 39 UNIT

REACTIONS (7)
  - HYPERHIDROSIS [None]
  - PYREXIA [None]
  - CHILLS [None]
  - THROMBOSIS IN DEVICE [None]
  - CATHETER SITE SWELLING [None]
  - STAPHYLOCOCCUS TEST POSITIVE [None]
  - LIMB DISCOMFORT [None]
